FAERS Safety Report 5564220-5 (Version None)
Quarter: 2007Q4

REPORT INFORMATION
  Report Type: 
  Country: None (occurrence: None)
  Receive Date: 20071217
  Receipt Date: 20071211
  Transmission Date: 20080405
  Serious: Yes (Death)
  Sender: FDA-Public Use
  Company Number: BE-MERCK-0712BEL00011

PATIENT
  Age: 65 Year
  Sex: Male
  Weight: 78 kg

DRUGS (5)
  1. CANCIDAS [Suspect]
     Indication: FEBRILE NEUTROPENIA
     Route: 041
     Dates: start: 20071023, end: 20071023
  2. CANCIDAS [Suspect]
     Route: 041
     Dates: start: 20071024, end: 20071107
  3. CANCIDAS [Suspect]
     Indication: COUGH
     Route: 041
     Dates: start: 20071023, end: 20071023
  4. CANCIDAS [Suspect]
     Route: 041
     Dates: start: 20071024, end: 20071107
  5. MEROPENEM [Concomitant]
     Indication: FEBRILE NEUTROPENIA
     Route: 041
     Dates: start: 20071023, end: 20071104

REACTIONS (1)
  - ACUTE MYELOID LEUKAEMIA [None]
